FAERS Safety Report 10724440 (Version 1)
Quarter: 2015Q1

REPORT INFORMATION
  Report Type: Report from Study
  Country: US (occurrence: US)
  Receive Date: 20150120
  Receipt Date: 20150120
  Transmission Date: 20150721
  Serious: Yes (Hospitalization, Other)
  Sender: FDA-Public Use
  Company Number: US-EXELIXIS-XL18415005091

PATIENT
  Age: 67 Year
  Sex: Male
  Weight: 68 kg

DRUGS (7)
  1. ALBUTEROL. [Concomitant]
     Active Substance: ALBUTEROL
  2. FOLIC ACID. [Concomitant]
     Active Substance: FOLIC ACID
  3. LOSARTAN [Concomitant]
     Active Substance: LOSARTAN
  4. XL184 [Suspect]
     Active Substance: CABOZANTINIB
     Indication: NON-SMALL CELL LUNG CANCER
     Dosage: 40 MG, QD
     Route: 048
     Dates: start: 20131231, end: 20141020
  5. PANTOPRAZOLE [Concomitant]
     Active Substance: PANTOPRAZOLE SODIUM
  6. IPRATROPIUM [Concomitant]
     Active Substance: IPRATROPIUM
  7. TARCEVA [Concomitant]
     Active Substance: ERLOTINIB HYDROCHLORIDE
     Dosage: 150 MG, QD
     Route: 048
     Dates: start: 20131231, end: 20141021

REACTIONS (3)
  - Aphasia [Not Recovered/Not Resolved]
  - Seizure [Recovered/Resolved]
  - Amylase increased [Recovered/Resolved with Sequelae]

NARRATIVE: CASE EVENT DATE: 20141021
